FAERS Safety Report 5972333-9 (Version None)
Quarter: 2008Q4

REPORT INFORMATION
  Report Type: 
  Country: None (occurrence: None)
  Receive Date: 20081201
  Receipt Date: 20080916
  Transmission Date: 20090506
  Serious: No
  Sender: FDA-Public Use
  Company Number: US-TEVA-177536USA

PATIENT
  Age: 60 Year
  Sex: Male
  Weight: 68.1 kg

DRUGS (4)
  1. AZILECT [Suspect]
     Indication: PARKINSON'S DISEASE
  2. AZILECT [Suspect]
  3. PRAMIPEXOLE DIHYDROCHLORIDE [Concomitant]
  4. AMANTADINE HCL [Concomitant]

REACTIONS (1)
  - HALLUCINATION [None]
